APPROVED DRUG PRODUCT: TESTOSTERONE
Active Ingredient: TESTOSTERONE
Strength: 30MG/1.5ML ACTUATION
Dosage Form/Route: SOLUTION, METERED;TRANSDERMAL
Application: A209181 | Product #001
Applicant: APOTEX INC
Approved: Nov 25, 2020 | RLD: No | RS: No | Type: DISCN